FAERS Safety Report 13350818 (Version 1)
Quarter: 2017Q1

REPORT INFORMATION
  Report Type: Report from Study
  Country: MX (occurrence: MX)
  Receive Date: 20170320
  Receipt Date: 20170320
  Transmission Date: 20170429
  Serious: Yes (Death, Hospitalization, Other)
  Sender: FDA-Public Use
  Company Number: MX-BAYER-2016-136447

PATIENT
  Age: 55 Year
  Sex: Female
  Weight: 50 kg

DRUGS (3)
  1. NEXAVAR [Suspect]
     Active Substance: SORAFENIB
     Indication: HEPATOCELLULAR CARCINOMA
     Dosage: 400 MG, BID
     Route: 048
     Dates: start: 20160611, end: 20161001
  2. NEXAVAR [Suspect]
     Active Substance: SORAFENIB
     Indication: HEPATOCELLULAR CARCINOMA
     Dosage: 400 MG, BID
     Route: 048
     Dates: start: 201610
  3. GABAPENTIN. [Concomitant]
     Active Substance: GABAPENTIN

REACTIONS (70)
  - Feeling of despair [Recovered/Resolved]
  - Asthenia [Recovering/Resolving]
  - Gastrooesophageal reflux disease [Unknown]
  - Irritability [Not Recovered/Not Resolved]
  - Dysgeusia [Not Recovered/Not Resolved]
  - Dysstasia [None]
  - Crying [Recovered/Resolved]
  - Chest discomfort [Not Recovered/Not Resolved]
  - Mouth ulceration [Not Recovered/Not Resolved]
  - Hepatic pain [Not Recovered/Not Resolved]
  - Tearfulness [Not Recovered/Not Resolved]
  - Dyspepsia [Not Recovered/Not Resolved]
  - Insomnia [None]
  - Anger [Not Recovered/Not Resolved]
  - Diet refusal [Not Recovered/Not Resolved]
  - Muscular weakness [None]
  - Anxiety [Recovered/Resolved]
  - Crying [Not Recovered/Not Resolved]
  - Back pain [Not Recovered/Not Resolved]
  - Mucosal inflammation [Recovering/Resolving]
  - Depressed mood [Recovered/Resolved]
  - Intentional product use issue [None]
  - Drug ineffective [Not Recovered/Not Resolved]
  - Urinary tract infection [Unknown]
  - Rash [Recovering/Resolving]
  - Fatigue [Recovering/Resolving]
  - Eating disorder [Recovering/Resolving]
  - Alopecia [Not Recovered/Not Resolved]
  - Depressed mood [Not Recovered/Not Resolved]
  - Feeding disorder [Unknown]
  - Blood albumin abnormal [Not Recovered/Not Resolved]
  - Abdominal distension [Not Recovered/Not Resolved]
  - Emotional disorder [Not Recovered/Not Resolved]
  - Gastric disorder [Not Recovered/Not Resolved]
  - Fatigue [Recovered/Resolved]
  - Weight decreased [Unknown]
  - Purpura [Unknown]
  - Neoplasm progression [Not Recovered/Not Resolved]
  - Bone pain [Recovering/Resolving]
  - Anxiety [Recovered/Resolved]
  - Fluid retention [Not Recovered/Not Resolved]
  - Feeding disorder [Not Recovered/Not Resolved]
  - Feeling of despair [Recovered/Resolved]
  - Fatigue [Not Recovered/Not Resolved]
  - Abdominal pain [Not Recovered/Not Resolved]
  - Gastritis [None]
  - Abdominal pain [Not Recovered/Not Resolved]
  - Pain in extremity [Not Recovered/Not Resolved]
  - Dyspepsia [None]
  - Dizziness [Recovering/Resolving]
  - Poor quality sleep [Not Recovered/Not Resolved]
  - Discomfort [Not Recovered/Not Resolved]
  - Major depression [Recovered/Resolved]
  - Malaise [Not Recovered/Not Resolved]
  - Blood bilirubin increased [Not Recovered/Not Resolved]
  - Headache [Not Recovered/Not Resolved]
  - Pain [Recovering/Resolving]
  - Nausea [Recovering/Resolving]
  - Activities of daily living impaired [Not Recovered/Not Resolved]
  - Death [Fatal]
  - Tumour necrosis [Not Recovered/Not Resolved]
  - Glossitis [Recovering/Resolving]
  - Vision blurred [Recovering/Resolving]
  - Colitis [Not Recovered/Not Resolved]
  - Abdominal distension [Not Recovered/Not Resolved]
  - Pain in extremity [Not Recovered/Not Resolved]
  - Abdominal pain upper [Not Recovered/Not Resolved]
  - Abdominal pain [Not Recovered/Not Resolved]
  - Asthenia [Not Recovered/Not Resolved]
  - Eating disorder [Recovering/Resolving]

NARRATIVE: CASE EVENT DATE: 2016
